FAERS Safety Report 24586861 (Version 2)
Quarter: 2024Q4

REPORT INFORMATION
  Report Type: Spontaneous
  Country: FR (occurrence: FR)
  Receive Date: 20241107
  Receipt Date: 20241225
  Transmission Date: 20250115
  Serious: Yes (Hospitalization, Other)
  Sender: AMGEN
  Company Number: FR-AMGEN-FRASP2024215124

PATIENT
  Age: 51 Year
  Sex: Female

DRUGS (43)
  1. PROLIA [Suspect]
     Active Substance: DENOSUMAB
     Indication: Breast cancer
     Dosage: 60 MILLIGRAM, Q6MO
     Route: 058
     Dates: start: 20150505, end: 20210505
  2. PROLIA [Suspect]
     Active Substance: DENOSUMAB
     Indication: Osteoporosis
  3. VITAMIN D [Concomitant]
     Active Substance: VITAMIN D NOS
  4. DOTAREM [Concomitant]
     Active Substance: GADOTERATE MEGLUMINE
     Dosage: UNK (0.5 MILLIMOLE PER MILLILITRE)
     Dates: start: 20120709
  5. Zincum [Concomitant]
     Dosage: 5 GRANULES AT BEDTIME
  6. NOLVADEX [Concomitant]
     Active Substance: TAMOXIFEN CITRATE
     Dosage: 20 MILLIGRAM, Q3MO
     Dates: start: 20120709, end: 20230724
  7. NOLVADEX [Concomitant]
     Active Substance: TAMOXIFEN CITRATE
     Dosage: 20 MILLIGRAM, QD (FOR 12 MONTHS)
  8. ENANTONE LP [Concomitant]
     Active Substance: LEUPROLIDE ACETATE
     Dosage: 11.25 MILLIGRAM, QD (PARENTERAL INTRAMUSCULAR (IM)/SUBCUTANEOUS (SC) USE)
     Route: 058
  9. FEMARA [Concomitant]
     Active Substance: LETROZOLE
     Dosage: 2.5 MILLIGRAM, QD (FOR 12 MONTHS)
     Dates: start: 201312, end: 2021
  10. DOLIPRANE [Concomitant]
     Active Substance: ACETAMINOPHEN
     Dosage: 1000 MILLIGRAM, BID
     Route: 048
  11. DOLIPRANE [Concomitant]
     Active Substance: ACETAMINOPHEN
     Dosage: 1000 MILLIGRAM, TID (POST SURGERY)
     Route: 048
  12. TAMOXIFEN [Concomitant]
     Active Substance: TAMOXIFEN
     Dosage: 20 MILLIGRAM, QD
  13. CHOLECALCIFEROL [Concomitant]
     Active Substance: CHOLECALCIFEROL
     Dosage: QD ( 100,000 IU SOLUTION FOR DRINKING VIAL/2ML)
  14. CALCIUM CARBONATE\CHOLECALCIFEROL [Concomitant]
     Active Substance: CALCIUM CARBONATE\CHOLECALCIFEROL
     Dosage: QD (TAKE 2 TABLETS IN THE MORNING, FOR 12 MONTHS EXCEPT ON SUNDAYS)
  15. DAFALGAN [Concomitant]
     Active Substance: ACETAMINOPHEN
     Indication: Pyrexia
     Dosage: 1000 MILLIGRAM, QD (1 TO 4 PER DAY)
  16. DAFALGAN [Concomitant]
     Active Substance: ACETAMINOPHEN
     Indication: Pain
  17. IBUPROFEN [Concomitant]
     Active Substance: IBUPROFEN
     Indication: Pain
     Dosage: 400 MILLIGRAM, QD ((MAXIMUM 3 PER DAY))
  18. AZITHROMYCIN [Concomitant]
     Active Substance: AZITHROMYCIN
     Dosage: UNK UNK, BID (1 IN THE MORNING AND EVENING, FOR 3 DAYS IN EACH EYE)
     Route: 047
  19. LEVOCETIRIZINE [Concomitant]
     Active Substance: LEVOCETIRIZINE
     Dosage: 5 MILLIGRAM (TAKE 1 TABLET IN THE EVENING FOR 1 MONTH AS NEEDED)
  20. Diclofenac arrow [Concomitant]
     Dosage: (1 APPLICATION MORNING AND EVENING)
  21. BENZALKONIUM CHLORIDE\BENZYL ALCOHOL\CHLORHEXIDINE [Concomitant]
     Active Substance: BENZALKONIUM CHLORIDE\BENZYL ALCOHOL\CHLORHEXIDINE
     Route: 061
  22. LANSOPRAZOLE [Concomitant]
     Active Substance: LANSOPRAZOLE
     Dosage: 15 MILLIGRAM
  23. LANSOPRAZOLE [Concomitant]
     Active Substance: LANSOPRAZOLE
     Dosage: 15 MILLIGRAM
  24. POLYETHYLENE GLYCOL 4000 [Concomitant]
     Active Substance: POLYETHYLENE GLYCOL 4000
  25. MOVICOL [Concomitant]
     Active Substance: POLYETHYLENE GLYCOL 3350\POTASSIUM CHLORIDE\SODIUM BICARBONATE\SODIUM CHLORIDE
  26. PRIMPERAN [Concomitant]
     Active Substance: METOCLOPRAMIDE HYDROCHLORIDE
     Dosage: 10 MILLIGRAM
  27. COVID-19 vaccine [Concomitant]
  28. OXYCONTIN [Concomitant]
     Active Substance: OXYCODONE HYDROCHLORIDE
     Dosage: 5 MILLIGRAM
  29. OXYCODONE HYDROCHLORIDE [Concomitant]
     Active Substance: OXYCODONE HYDROCHLORIDE
     Dosage: 5 MILLIGRAM, Q4H
  30. TRAMADOL [Concomitant]
     Active Substance: TRAMADOL
     Dosage: 50 MILLIGRAM
  31. CHOLECALCIFEROL [Concomitant]
     Active Substance: CHOLECALCIFEROL
     Dosage: (50,000 IU ORAL SOLUTION IN AMPULE, 4AMP/2 ML)
  32. Meteospasmyl [Concomitant]
     Dosage: UNK UNK, TID (2 CAPSULES FOR 3 DAYS)
  33. Meteospasmyl [Concomitant]
     Dosage: UNK, TID (1 CAPSULE 3 TIMES PER DAY FO 6 DAYSR)
  34. Dulcolax [Concomitant]
     Dosage: 5 MILLIGRAM
  35. ALUMINUM HYDROXIDE\MAGNESIUM HYDROXIDE [Concomitant]
     Active Substance: ALUMINUM HYDROXIDE\MAGNESIUM HYDROXIDE
     Dosage: UNK TID (1 TABLET AT ONSET OF PAIN)
  36. RABEPRAZOLE [Concomitant]
     Active Substance: RABEPRAZOLE
     Dosage: 10 MILLIGRAM, QD
  37. REXORUBIA [Concomitant]
  38. BROMAZEPAM [Concomitant]
     Active Substance: BROMAZEPAM
     Dosage: 6 MILLIGRAM (TAKE 1/2 TABLET IN THE MORNING AND EVENING IF REQUIRED)
  39. ESCITALOPRAM [Concomitant]
     Active Substance: ESCITALOPRAM OXALATE
     Dosage: 5 MILLIGRAM, QD (TAKE 1 TABLET IN THE MORNING FOR 1 MONTH)
  40. Formag [Concomitant]
     Dosage: UNK UNK, QD (TAKE 1 TABLET PER DAY FOR 1 MONTH)
  41. SPIRAMYCIN [Concomitant]
     Active Substance: SPIRAMYCIN
     Dosage: (1 TABLET MORNINGS AND EVENINGS FOR 6 DAYS)
  42. METRONIDAZOLE [Concomitant]
     Active Substance: METRONIDAZOLE
     Dosage: 250 MILLIGRAM (1 TABLET MORNINGS AND EVENINGS FOR 6 DAYS)
  43. Eludril [Concomitant]
     Dosage: (1 MOUTHWASH AFTER EACH MEAL WITH ONE 15 ML MEASURE OF DILUTES LIQUID)

REACTIONS (36)
  - Spinal compression fracture [Not Recovered/Not Resolved]
  - Fractured sacrum [Unknown]
  - Disability [Unknown]
  - Back pain [Not Recovered/Not Resolved]
  - Neck pain [Unknown]
  - Breast calcifications [Unknown]
  - Pain [Unknown]
  - Joint stiffness [Unknown]
  - Musculoskeletal stiffness [Unknown]
  - Reflux gastritis [Unknown]
  - Stress [Unknown]
  - Fatigue [Unknown]
  - Tumour excision [Unknown]
  - Spinal deformity [Unknown]
  - Weight increased [Unknown]
  - Sleep apnoea syndrome [Unknown]
  - Upper airway resistance syndrome [Unknown]
  - Psychiatric symptom [Unknown]
  - Malaise [Unknown]
  - Fall [Unknown]
  - Body height decreased [Unknown]
  - Posture abnormal [Unknown]
  - Blood cholesterol increased [Unknown]
  - Blood calcium increased [Unknown]
  - Blood albumin decreased [Unknown]
  - Alpha 2 globulin decreased [Unknown]
  - Beta globulin decreased [Unknown]
  - Pyrexia [Unknown]
  - Vomiting [Unknown]
  - Epistaxis [Unknown]
  - Tooth loss [Unknown]
  - Constipation [Unknown]
  - Abdominal distension [Unknown]
  - Platelet count increased [Unknown]
  - Insomnia [Unknown]
  - Gingival disorder [Unknown]

NARRATIVE: CASE EVENT DATE: 20160702
